FAERS Safety Report 17943834 (Version 1)
Quarter: 2020Q2

REPORT INFORMATION
  Report Type: Report from Study
  Country: None (occurrence: US)
  Receive Date: 20200625
  Receipt Date: 20200625
  Transmission Date: 20200714
  Serious: Yes (Hospitalization, Other)
  Sender: FDA-Public Use
  Company Number: US-ABBVIE-20K-163-3416534-00

PATIENT
  Age: 64 Year
  Sex: Female

DRUGS (1)
  1. HUMIRA [Suspect]
     Active Substance: ADALIMUMAB
     Indication: RHEUMATOID ARTHRITIS
     Dosage: CITRATE FREE
     Route: 058

REACTIONS (9)
  - Mucous stools [Recovered/Resolved]
  - Polyp [Recovered/Resolved]
  - Diverticulitis [Recovered/Resolved]
  - Rheumatoid arthritis [Unknown]
  - Colitis ulcerative [Recovered/Resolved]
  - Conjunctivitis [Recovered/Resolved]
  - Stress [Unknown]
  - Sepsis [Recovered/Resolved]
  - Faeces discoloured [Recovered/Resolved]

NARRATIVE: CASE EVENT DATE: 202005
